FAERS Safety Report 14331491 (Version 1)
Quarter: 2017Q4

REPORT INFORMATION
  Report Type: Spontaneous
  Country: US (occurrence: US)
  Receive Date: 20171228
  Receipt Date: 20171228
  Transmission Date: 20180321
  Serious: Yes (Other)
  Sender: FDA-Public Use
  Company Number: US-ELI_LILLY_AND_COMPANY-US201712009716

PATIENT
  Sex: Male

DRUGS (2)
  1. TRULICITY [Suspect]
     Active Substance: DULAGLUTIDE
     Dosage: 0.75 MG, UNKNOWN
     Route: 058
  2. TRULICITY [Suspect]
     Active Substance: DULAGLUTIDE
     Indication: TYPE 2 DIABETES MELLITUS
     Dosage: 0.75 MG, UNKNOWN
     Route: 058

REACTIONS (8)
  - Fall [Unknown]
  - Blood glucose increased [Recovering/Resolving]
  - Sensory loss [Not Recovered/Not Resolved]
  - Incorrect dose administered [Unknown]
  - General physical health deterioration [Recovering/Resolving]
  - Pain [Unknown]
  - Peripheral nerve lesion [Recovering/Resolving]
  - Blood glucose fluctuation [Recovering/Resolving]
